FAERS Safety Report 20939389 (Version 2)
Quarter: 2022Q3

REPORT INFORMATION
  Report Type: Spontaneous
  Country: GR (occurrence: GR)
  Receive Date: 20220609
  Receipt Date: 20220705
  Transmission Date: 20221027
  Serious: Yes (Hospitalization, Other)
  Sender: FDA-Public Use
  Company Number: GR-TAR-2022-00010

PATIENT
  Age: 62 Year
  Sex: Male

DRUGS (6)
  1. APIXABAN [Suspect]
     Active Substance: APIXABAN
     Indication: Thrombosis prophylaxis
  2. APIXABAN [Suspect]
     Active Substance: APIXABAN
  3. APIXABAN [Suspect]
     Active Substance: APIXABAN
  4. APIXABAN [Suspect]
     Active Substance: APIXABAN
  5. ASPIRIN [Suspect]
     Active Substance: ASPIRIN
     Indication: Thrombosis prophylaxis
  6. CLOPIDOGREL [Suspect]
     Active Substance: CLOPIDOGREL BISULFATE
     Indication: Thrombosis prophylaxis

REACTIONS (2)
  - Renal impairment [Recovered/Resolved]
  - Haematuria [Recovered/Resolved]
